FAERS Safety Report 7026422-0 (Version None)
Quarter: 2010Q4

REPORT INFORMATION
  Report Type: 
  Country: None (occurrence: None)
  Receive Date: 20101004
  Receipt Date: 20100921
  Transmission Date: 20110411
  Serious: Yes (Other)
  Sender: FDA-Public Use
  Company Number: PHHY2010US62781

PATIENT
  Sex: Female
  Weight: 64.9 kg

DRUGS (4)
  1. LAMISIL [Suspect]
     Indication: ONYCHOMYCOSIS
     Dosage: 250 MG, UNK
     Dates: start: 20100709, end: 20100729
  2. VYVANSE [Interacting]
     Indication: ATTENTION DEFICIT/HYPERACTIVITY DISORDER
     Dosage: 60 MG, QD
     Route: 048
     Dates: start: 20080613, end: 20100616
  3. VYVANSE [Interacting]
     Dosage: 70 MG, QD
     Route: 048
     Dates: start: 20100617, end: 20100729
  4. VYVANSE [Interacting]
     Dosage: 60 MG, QD

REACTIONS (7)
  - BLOOD PRESSURE INCREASED [None]
  - CHEST DISCOMFORT [None]
  - CHEST PAIN [None]
  - DRUG INTERACTION [None]
  - PAIN IN EXTREMITY [None]
  - TACHYCARDIA [None]
  - TREMOR [None]
